FAERS Safety Report 14006238 (Version 1)
Quarter: 2017Q3

REPORT INFORMATION
  Report Type: Spontaneous
  Country: US (occurrence: US)
  Receive Date: 20170924
  Receipt Date: 20170924
  Transmission Date: 20171128
  Serious: No
  Sender: FDA-Public Use
  Company Number: US-ASTRAZENECA-2017SE96048

PATIENT
  Age: 47 Year
  Sex: Male

DRUGS (1)
  1. NEXIUM [Suspect]
     Active Substance: ESOMEPRAZOLE MAGNESIUM
     Indication: GASTROOESOPHAGEAL REFLUX DISEASE
     Dosage: NEXIUM 40 MG, ONE TO TWO CAPSULES DAILY
     Route: 048

REACTIONS (8)
  - Visual impairment [Unknown]
  - Urethral pain [Recovered/Resolved]
  - Intentional product use issue [Unknown]
  - Oesophageal pain [Unknown]
  - Oesophagitis [Unknown]
  - Product taste abnormal [Unknown]
  - Asthma [Recovered/Resolved]
  - Oesophageal spasm [Unknown]
